FAERS Safety Report 12193122 (Version 1)
Quarter: 2016Q1

REPORT INFORMATION
  Report Type: Spontaneous
  Country: IE (occurrence: IE)
  Receive Date: 20160319
  Receipt Date: 20160319
  Transmission Date: 20160526
  Serious: Yes (Other)
  Sender: FDA-Public Use
  Company Number: IE-ABBVIE-16K-229-1584261-00

PATIENT
  Age: 54 Year
  Sex: Female

DRUGS (1)
  1. HUMIRA [Suspect]
     Active Substance: ADALIMUMAB
     Indication: ARTHRITIS
     Route: 058
     Dates: start: 20160209

REACTIONS (7)
  - Burning sensation [Not Recovered/Not Resolved]
  - Urinary tract infection [Not Recovered/Not Resolved]
  - Paraesthesia [Not Recovered/Not Resolved]
  - Feeling hot [Not Recovered/Not Resolved]
  - Urticaria [Recovering/Resolving]
  - Rash morbilliform [Recovering/Resolving]
  - Kidney infection [Not Recovered/Not Resolved]

NARRATIVE: CASE EVENT DATE: 20160221
